FAERS Safety Report 5294453-7 (Version None)
Quarter: 2007Q2

REPORT INFORMATION
  Report Type: 
  Country: None (occurrence: None)
  Receive Date: 20070409
  Receipt Date: 20070409
  Transmission Date: 20071010
  Serious: Yes (Hospitalization)
  Sender: FDA-Public Use
  Company Number: None

PATIENT
  Age: 58 Year
  Sex: Male
  Weight: 117 kg

DRUGS (1)
  1. CHANTIX [Suspect]
     Indication: SMOKING CESSATION THERAPY
     Dosage: 0.5 MG BID PO
     Route: 048
     Dates: start: 20070331, end: 20070406

REACTIONS (5)
  - COUGH [None]
  - CYANOSIS [None]
  - DYSKINESIA [None]
  - EYE ROLLING [None]
  - LOSS OF CONSCIOUSNESS [None]
